FAERS Safety Report 10222153 (Version 1)
Quarter: 2014Q2

REPORT INFORMATION
  Report Type: Spontaneous
  Country: MX (occurrence: MX)
  Receive Date: 20140606
  Receipt Date: 20140606
  Transmission Date: 20141212
  Serious: No
  Sender: FDA-Public Use
  Company Number: MX-BIOMARINAP-MX-2014-103300

PATIENT
  Sex: Female
  Weight: 15 kg

DRUGS (1)
  1. NAGLAZYME [Suspect]
     Indication: PRODUCT USED FOR UNKNOWN INDICATION
     Dosage: 15 MG, QW
     Route: 041
     Dates: start: 20121113, end: 20140519

REACTIONS (2)
  - Influenza [Unknown]
  - Cough [Unknown]
